FAERS Safety Report 14700236 (Version 2)
Quarter: 2018Q2

REPORT INFORMATION
  Report Type: Spontaneous
  Country: TR (occurrence: TR)
  Receive Date: 20180330
  Receipt Date: 20180405
  Transmission Date: 20180711
  Serious: Yes (Hospitalization)
  Sender: FDA-Public Use
  Company Number: TR-TEVA-2018-TR-874468

PATIENT
  Age: 7 Year
  Sex: Female

DRUGS (1)
  1. VINCRISTINE [Suspect]
     Active Substance: VINCRISTINE
     Indication: ACUTE LYMPHOCYTIC LEUKAEMIA
     Dosage: 3MG/M2 (MAXIMUM 5 MG); TWO DOSES ONE WEEK APART
     Route: 065

REACTIONS (1)
  - Cranial nerve disorder [Recovered/Resolved]
